FAERS Safety Report 15829427 (Version 1)
Quarter: 2019Q1

REPORT INFORMATION
  Report Type: Spontaneous
  Country: US (occurrence: US)
  Receive Date: 20190115
  Receipt Date: 20190115
  Transmission Date: 20190417
  Serious: No
  Sender: FDA-Public Use
  Company Number: US-ALLERGAN-1843324US

PATIENT
  Age: 3 Year
  Sex: Male

DRUGS (1)
  1. RESTASIS [Suspect]
     Active Substance: CYCLOSPORINE
     Indication: VISUAL IMPAIRMENT
     Dosage: UNKNOWN, BID
     Route: 047

REACTIONS (1)
  - Off label use [Unknown]
